FAERS Safety Report 20322526 (Version 1)
Quarter: 2022Q1

REPORT INFORMATION
  Report Type: Report from Study
  Country: US (occurrence: US)
  Receive Date: 20220111
  Receipt Date: 20220111
  Transmission Date: 20220423
  Serious: Yes (Hospitalization)
  Sender: FDA-Public Use
  Company Number: US-VERTEX PHARMACEUTICALS-2022-000078

PATIENT
  Age: 52 Year
  Sex: Female

DRUGS (12)
  1. TRIKAFTA [Suspect]
     Active Substance: ELEXACAFTOR\IVACAFTOR\TEZACAFTOR
     Indication: Cystic fibrosis
     Dosage: 2 TABS AM; 1 BLUE TAB PM
     Route: 048
     Dates: start: 2019
  2. TRIKAFTA [Suspect]
     Active Substance: ELEXACAFTOR\IVACAFTOR\TEZACAFTOR
     Dosage: ADJUSTED DOSE
     Route: 048
  3. TRIKAFTA [Suspect]
     Active Substance: ELEXACAFTOR\IVACAFTOR\TEZACAFTOR
     Dosage: NORMAL DOSING
     Route: 048
  4. ZENPEP [Concomitant]
     Active Substance: PANCRELIPASE AMYLASE\PANCRELIPASE LIPASE\PANCRELIPASE PROTEASE
     Dosage: 25K
  5. HUMALOG [Concomitant]
     Active Substance: INSULIN LISPRO
  6. CETIRIZINE HYDROCHLORIDE [Concomitant]
     Active Substance: CETIRIZINE HYDROCHLORIDE
  7. BUDESONIDE [Concomitant]
     Active Substance: BUDESONIDE
     Dosage: 0.25MG/2 ML
  8. NYSTATIN [Concomitant]
     Active Substance: NYSTATIN
     Route: 048
  9. BROVANA [Concomitant]
     Active Substance: ARFORMOTEROL TARTRATE
  10. ATROVENT [Concomitant]
     Active Substance: IPRATROPIUM BROMIDE
  11. DUONEB [Concomitant]
     Active Substance: ALBUTEROL SULFATE\IPRATROPIUM BROMIDE
  12. VENTOLIN [Concomitant]
     Active Substance: ALBUTEROL SULFATE

REACTIONS (3)
  - Viral infection [Unknown]
  - Respiratory symptom [Unknown]
  - Feeling abnormal [Not Recovered/Not Resolved]

NARRATIVE: CASE EVENT DATE: 20190901
